FAERS Safety Report 13771144 (Version 1)
Quarter: 2017Q3

REPORT INFORMATION
  Report Type: Spontaneous
  Country: US (occurrence: US)
  Receive Date: 20170720
  Receipt Date: 20170720
  Transmission Date: 20171127
  Serious: No
  Sender: FDA-Public Use
  Company Number: US-MEDA-2017070007

PATIENT
  Age: 71 Year
  Sex: Male
  Weight: 107 kg

DRUGS (17)
  1. MUSE [Suspect]
     Active Substance: ALPROSTADIL
     Indication: ERECTILE DYSFUNCTION
     Route: 066
     Dates: start: 20170628, end: 20170628
  2. DILTIAZEM 24-HOUR EXTENDED RELEASE [Concomitant]
  3. VITAMIN C [Concomitant]
     Active Substance: ASCORBIC ACID
  4. MONTELUKAST [Concomitant]
     Active Substance: MONTELUKAST SODIUM
  5. DIGOXIN. [Concomitant]
     Active Substance: DIGOXIN
  6. FINASTERIDE. [Concomitant]
     Active Substance: FINASTERIDE
  7. MUSE [Suspect]
     Active Substance: ALPROSTADIL
     Indication: ERECTILE DYSFUNCTION
     Route: 066
     Dates: start: 20170629, end: 20170629
  8. METFORMIN [Concomitant]
     Active Substance: METFORMIN HYDROCHLORIDE
  9. GLIMEPIRIDE. [Concomitant]
     Active Substance: GLIMEPIRIDE
  10. VITAMIN B12 [Concomitant]
     Active Substance: CYANOCOBALAMIN
  11. SILDENAFIL. [Concomitant]
     Active Substance: SILDENAFIL
     Indication: ERECTILE DYSFUNCTION
     Dosage: UPTO 5 TABLETS IN A DAY
  12. VICTOZA [Concomitant]
     Active Substance: LIRAGLUTIDE
  13. XARELTO [Concomitant]
     Active Substance: RIVAROXABAN
  14. ATORVASTATIN [Concomitant]
     Active Substance: ATORVASTATIN
  15. ALFUZOSIN [Concomitant]
     Active Substance: ALFUZOSIN
  16. CIALIS [Concomitant]
     Active Substance: TADALAFIL
     Indication: ERECTILE DYSFUNCTION
  17. INVOKANA [Concomitant]
     Active Substance: CANAGLIFLOZIN

REACTIONS (2)
  - Drug ineffective [Not Recovered/Not Resolved]
  - Penile pain [Unknown]

NARRATIVE: CASE EVENT DATE: 20170628
